FAERS Safety Report 16809915 (Version 1)
Quarter: 2019Q3

REPORT INFORMATION
  Report Type: Spontaneous
  Country: HK (occurrence: HK)
  Receive Date: 20190916
  Receipt Date: 20190916
  Transmission Date: 20191005
  Serious: Yes (Other)
  Sender: FDA-Public Use
  Company Number: HK-BAYER-2019-169032

PATIENT
  Age: 66 Year

DRUGS (1)
  1. LAROTRECTINIB [Suspect]
     Active Substance: LAROTRECTINIB
     Dosage: UNK
     Dates: end: 20190826

REACTIONS (4)
  - Metastases to lung [None]
  - Metastases to lymph nodes [None]
  - Metastases to liver [None]
  - Metastases to meninges [None]

NARRATIVE: CASE EVENT DATE: 20190826
